FAERS Safety Report 20020576 (Version 2)
Quarter: 2021Q4

REPORT INFORMATION
  Report Type: Spontaneous
  Country: US (occurrence: None)
  Receive Date: 20211101
  Receipt Date: 20211115
  Transmission Date: 20220303
  Serious: No
  Sender: FDA-Public Use
  Company Number: 2021A778805

PATIENT
  Age: 28459 Day
  Sex: Female
  Weight: 68 kg

DRUGS (1)
  1. BUDESONIDE\FORMOTEROL\GLYCOPYRRONIUM [Suspect]
     Active Substance: BUDESONIDE\FORMOTEROL\GLYCOPYRRONIUM
     Indication: Chronic obstructive pulmonary disease
     Dosage: 160/9/4.8 MCGS UNKNOWN
     Route: 055
     Dates: start: 20211015

REACTIONS (10)
  - Secretion discharge [Unknown]
  - Cerebral disorder [Not Recovered/Not Resolved]
  - Vision blurred [Unknown]
  - Somnolence [Unknown]
  - Palpitations [Unknown]
  - Accidental exposure to product [Unknown]
  - Device use confusion [Unknown]
  - Device ineffective [Unknown]
  - Wrong technique in device usage process [Unknown]
  - Product use complaint [Unknown]

NARRATIVE: CASE EVENT DATE: 20211015
